FAERS Safety Report 20356770 (Version 1)
Quarter: 2022Q1

REPORT INFORMATION
  Report Type: Report from Study
  Country: FR (occurrence: FR)
  Receive Date: 20220120
  Receipt Date: 20220120
  Transmission Date: 20220423
  Serious: Yes (Other)
  Sender: FDA-Public Use
  Company Number: FR-JNJFOC-20220132803

PATIENT

DRUGS (7)
  1. REMICADE [Suspect]
     Active Substance: INFLIXIMAB
     Indication: Macular oedema
     Dosage: WEEK 0, 2, AND 6,  EVERY 4 TO 6 WEEKS
     Route: 042
  2. ADALIMUMAB [Suspect]
     Active Substance: ADALIMUMAB
     Indication: Macular oedema
     Dosage: 80 MG THEN 40 MG EVERY 2 WEEKS
     Route: 058
  3. TOCILIZUMAB [Suspect]
     Active Substance: TOCILIZUMAB
     Indication: Macular oedema
     Route: 042
  4. TOCILIZUMAB [Suspect]
     Active Substance: TOCILIZUMAB
     Route: 058
  5. METHOTREXATE [Concomitant]
     Active Substance: METHOTREXATE
  6. MYCOPHENOLATE MOFETIL [Concomitant]
     Active Substance: MYCOPHENOLATE MOFETIL
  7. AZATHIOPRINE [Concomitant]
     Active Substance: AZATHIOPRINE

REACTIONS (15)
  - Pseudomonal bacteraemia [Unknown]
  - Hepatitis B [Unknown]
  - Meningitis [Unknown]
  - Pyelonephritis [Unknown]
  - Skin cancer [Unknown]
  - Autoimmune disorder [Unknown]
  - Abscess [Unknown]
  - Hypersensitivity [Unknown]
  - Skin infection [Unknown]
  - Herpes virus infection [Unknown]
  - Pneumonia [Unknown]
  - Arthritis [Unknown]
  - Pyrexia [Unknown]
  - Off label use [Unknown]
  - Product use in unapproved indication [Unknown]
